FAERS Safety Report 8162781-3 (Version None)
Quarter: 2012Q1

REPORT INFORMATION
  Report Type: 
  Country: None (occurrence: None)
  Receive Date: 20120224
  Receipt Date: 20120216
  Transmission Date: 20120608
  Serious: Yes (Hospitalization)
  Sender: FDA-Public Use
  Company Number: FR-BAYER-2012-016458

PATIENT
  Age: 38 Year
  Sex: Female

DRUGS (3)
  1. PREDNISOLONE [Suspect]
     Indication: SINUSITIS
     Dosage: 20 MG, TID
     Route: 048
     Dates: start: 20111213, end: 20111215
  2. ACETAMINOPHEN [Suspect]
     Indication: SINUSITIS
     Dosage: 500 MG, BID
     Route: 048
     Dates: start: 20111213, end: 20111215
  3. MOXIFLOXACIN HCL [Suspect]
     Indication: SINUSITIS
     Dosage: 400 MG, QD
     Route: 048
     Dates: start: 20111213, end: 20111215

REACTIONS (3)
  - VOMITING [None]
  - ABDOMINAL PAIN UPPER [None]
  - PANCREATITIS [None]
